FAERS Safety Report 23585040 (Version 1)
Quarter: 2024Q1

REPORT INFORMATION
  Report Type: Report from Study
  Country: DE (occurrence: DE)
  Receive Date: 20240301
  Receipt Date: 20240301
  Transmission Date: 20240410
  Serious: Yes (Hospitalization)
  Sender: FDA-Public Use
  Company Number: DE-BAXTER-2024BAX013603

PATIENT
  Age: 72 Year

DRUGS (5)
  1. AMINO ACIDS\DEXTROSE\ELECTROLYTES NOS\SOYBEAN OIL [Suspect]
     Active Substance: AMINO ACIDS\DEXTROSE\ELECTROLYTES NOS\SOYBEAN OIL
     Dosage: 1085 ML AT AN UNSPECIFIED FREQUENCY
     Route: 042
     Dates: start: 20240222, end: 20240223
  2. VITAMINS [Suspect]
     Active Substance: VITAMINS
     Dosage: 10 ML AT AN UNSPECIFIED FREQUENCY
     Route: 042
     Dates: start: 20240222, end: 20240223
  3. ERGOCALCIFEROL\PHYTONADIONE\RETINOL\TOCOPHEROL [Suspect]
     Active Substance: ERGOCALCIFEROL\PHYTONADIONE\RETINOL\TOCOPHEROL
     Dosage: 10 ML AT AN UNSPECIFIED FREQUENCY
     Route: 042
     Dates: start: 20240222, end: 20240223
  4. ELECTROLYTES NOS\MINERALS [Suspect]
     Active Substance: ELECTROLYTES NOS\MINERALS
     Dosage: (MANUFACTURER: LABORATOIRE AGUETTANT S.A.S.) 10 ML AT AN UNSPECIFIED FREQUENCY
     Route: 042
     Dates: start: 20240222, end: 20240223
  5. UNSPECIFIED INGREDIENT [Suspect]
     Active Substance: UNSPECIFIED INGREDIENT
     Dosage: UNK
     Route: 065

REACTIONS (2)
  - Asthenia [Unknown]
  - General physical health deterioration [Unknown]

NARRATIVE: CASE EVENT DATE: 20240223
